FAERS Safety Report 6497673-9 (Version None)
Quarter: 2009Q4

REPORT INFORMATION
  Report Type: 
  Country: None (occurrence: None)
  Receive Date: 20091215
  Receipt Date: 20091207
  Transmission Date: 20100525
  Serious: Yes (Death)
  Sender: FDA-Public Use
  Company Number: KR-ROCHE-673871

PATIENT
  Sex: Female
  Weight: 40.4 kg

DRUGS (6)
  1. CAPECITABINE [Suspect]
     Route: 048
     Dates: start: 20080912, end: 20081108
  2. GEMCITABINE [Suspect]
     Route: 042
     Dates: start: 20080912, end: 20081101
  3. FUROSEMIDE [Concomitant]
     Indication: ASCITES
     Route: 048
     Dates: start: 20081001, end: 20090125
  4. SPIRONOLACTONE [Concomitant]
     Indication: ASCITES
     Route: 048
     Dates: start: 20081001, end: 20090125
  5. MEGESTROL ACETATE [Concomitant]
     Indication: THERAPEUTIC PROCEDURE
     Dosage: DOSE: 20 CC/DAY
     Route: 048
     Dates: start: 20080920, end: 20090116
  6. LANSOPRAZOLE [Concomitant]
     Indication: GASTRIC ULCER
     Route: 048
     Dates: start: 20090108, end: 20090115

REACTIONS (3)
  - MALIGNANT NEOPLASM PROGRESSION [None]
  - NAUSEA [None]
  - VOMITING [None]
